FAERS Safety Report 4589249-5 (Version None)
Quarter: 2005Q1

REPORT INFORMATION
  Report Type: 
  Country: None (occurrence: None)
  Receive Date: 20050217
  Receipt Date: 20050217
  Transmission Date: 20050727
  Serious: Yes (Life-Threatening, Disabling, Other)
  Sender: FDA-Public Use
  Company Number: None

PATIENT
  Age: 52 Year
  Sex: Female
  Weight: 70.3075 kg

DRUGS (16)
  1. AVONEX [Suspect]
     Indication: RELAPSING-REMITTING MULTIPLE SCLEROSIS
     Dosage: 30 MCG IM WEEKLY (SELF-INJECTED)
     Route: 030
     Dates: start: 20030601, end: 20041101
  2. PROZAC [Concomitant]
  3. ZOLOFT [Concomitant]
  4. ALPRAZOLAM [Concomitant]
  5. FAMOTIDINE [Concomitant]
  6. CONCERTA [Concomitant]
  7. HYDROCHLOROTHIAZIDE [Concomitant]
  8. KLONIPIN [Concomitant]
  9. BACLOFEN [Concomitant]
  10. RITALIN [Concomitant]
  11. CYANOCOBALAMIN [Concomitant]
  12. MORPHINE [Concomitant]
  13. VICODIN [Concomitant]
  14. OXYCONTIN [Concomitant]
  15. CORTISONE [Concomitant]
  16. COXYX [Concomitant]

REACTIONS (3)
  - BIOPSY SKIN ABNORMAL [None]
  - MALIGNANT MELANOMA IN SITU [None]
  - PIGMENTED NAEVUS [None]
